FAERS Safety Report 24982662 (Version 1)
Quarter: 2025Q1

REPORT INFORMATION
  Report Type: Spontaneous
  Country: ES (occurrence: ES)
  Receive Date: 20250218
  Receipt Date: 20250218
  Transmission Date: 20250409
  Serious: Yes (Other)
  Sender: ASCENT PHARMACEUTICALS INC
  Company Number: ES-ASCENT-2025ASLIT00015

PATIENT
  Age: 9 Year
  Sex: Male

DRUGS (3)
  1. IBUPROFEN [Suspect]
     Active Substance: IBUPROFEN
     Indication: Ear infection
     Route: 048
     Dates: start: 202308
  2. IBUPROFEN [Suspect]
     Active Substance: IBUPROFEN
     Indication: Ear infection
  3. METAMIZOLE [Concomitant]
     Active Substance: METAMIZOLE
     Indication: Product used for unknown indication
     Route: 048
     Dates: start: 202310

REACTIONS (8)
  - Enterocolitis [Unknown]
  - Off label use [Unknown]
  - Lip oedema [None]
  - Throat irritation [None]
  - Pallor [None]
  - Lethargy [None]
  - Salivary hypersecretion [None]
  - Dysphagia [None]

NARRATIVE: CASE EVENT DATE: 20230801
